FAERS Safety Report 17144791 (Version 1)
Quarter: 2019Q4

REPORT INFORMATION
  Report Type: Spontaneous
  Country: NL (occurrence: NL)
  Receive Date: 20191212
  Receipt Date: 20191212
  Transmission Date: 20200122
  Serious: Yes (Other)
  Sender: FDA-Public Use
  Company Number: NL-MYLANLABS-2019M1120968

PATIENT
  Sex: Female
  Weight: 82 kg

DRUGS (1)
  1. FLUOXETINE [Suspect]
     Active Substance: FLUOXETINE HYDROCHLORIDE
     Indication: DEPRESSION
     Dosage: 1X/D 40MG
     Route: 048
     Dates: start: 201802

REACTIONS (2)
  - Haemorrhagic diathesis [Unknown]
  - Haematoma [Recovering/Resolving]
